FAERS Safety Report 25012684 (Version 1)
Quarter: 2025Q1

REPORT INFORMATION
  Report Type: Spontaneous
  Country: CN (occurrence: CN)
  Receive Date: 20250226
  Receipt Date: 20250226
  Transmission Date: 20250408
  Serious: Yes (Hospitalization)
  Sender: BOEHRINGER INGELHEIM
  Company Number: CN-BoehringerIngelheim-2025-BI-011122

PATIENT
  Age: 4 Year
  Sex: Female
  Weight: 19.000 kg

DRUGS (2)
  1. ATROVENT [Suspect]
     Active Substance: IPRATROPIUM BROMIDE
     Indication: Cough
     Dates: start: 20211213, end: 20211215
  2. AO TE SI [Concomitant]
     Indication: Cough
     Dates: start: 20211213, end: 20211215

REACTIONS (4)
  - Headache [Recovered/Resolved]
  - Cough [Recovered/Resolved]
  - Post-tussive vomiting [Recovered/Resolved]
  - Cough [Recovered/Resolved]

NARRATIVE: CASE EVENT DATE: 20211215
